FAERS Safety Report 7478620-X (Version None)
Quarter: 2011Q2

REPORT INFORMATION
  Report Type: 
  Country: None (occurrence: None)
  Receive Date: 20110511
  Receipt Date: 20110511
  Transmission Date: 20111010
  Serious: Yes (Life-Threatening, Other)
  Sender: FDA-Public Use
  Company Number: None

PATIENT
  Sex: Female
  Weight: 90.2658 kg

DRUGS (5)
  1. EX LAX LAXATIVE PILLS 90 PILLS, MS, NOVARTIS NIGHT SHIFT (MS=MAXIMUM S [Suspect]
     Indication: CONSTIPATION
     Dosage: 24/2010 2 PILLS 8 H.LATER 3 PILLS ENEMAS ; 26/2010 JAN 3/11 2 PILLS + 3 PILLS ENEMAS
     Dates: start: 20101226
  2. EX LAX LAXATIVE PILLS 90 PILLS, MS, NOVARTIS NIGHT SHIFT (MS=MAXIMUM S [Suspect]
     Indication: CONSTIPATION
     Dosage: 24/2010 2 PILLS 8 H.LATER 3 PILLS ENEMAS ; 26/2010 JAN 3/11 2 PILLS + 3 PILLS ENEMAS
     Dates: start: 20101225
  3. EX LAX LAXATIVE PILLS 90 PILLS, MS, NOVARTIS NIGHT SHIFT (MS=MAXIMUM S [Suspect]
     Indication: CONSTIPATION
     Dosage: 24/2010 2 PILLS 8 H.LATER 3 PILLS ENEMAS ; 26/2010 JAN 3/11 2 PILLS + 3 PILLS ENEMAS
     Dates: start: 20110104
  4. EX LAX LAXATIVE PILLS 90 PILLS, MS, NOVARTIS NIGHT SHIFT (MS=MAXIMUM S [Suspect]
     Indication: CONSTIPATION
     Dosage: 24/2010 2 PILLS 8 H.LATER 3 PILLS ENEMAS ; 26/2010 JAN 3/11 2 PILLS + 3 PILLS ENEMAS
     Dates: start: 20101224
  5. EX LAX LAXATIVE PILLS 90 PILLS, MS, NOVARTIS NIGHT SHIFT (MS=MAXIMUM S [Suspect]
     Indication: CONSTIPATION
     Dosage: 24/2010 2 PILLS 8 H.LATER 3 PILLS ENEMAS ; 26/2010 JAN 3/11 2 PILLS + 3 PILLS ENEMAS
     Dates: start: 20110103

REACTIONS (1)
  - PRODUCT QUALITY ISSUE [None]
